FAERS Safety Report 5955843-X (Version None)
Quarter: 2008Q4

REPORT INFORMATION
  Report Type: 
  Country: None (occurrence: None)
  Receive Date: 20081117
  Receipt Date: 20081107
  Transmission Date: 20090506
  Serious: Yes (Hospitalization, Other)
  Sender: FDA-Public Use
  Company Number: US-PFIZER INC-2008096346

PATIENT
  Sex: Male
  Weight: 78 kg

DRUGS (3)
  1. SUTENT [Suspect]
     Indication: METASTATIC RENAL CELL CARCINOMA
     Route: 048
     Dates: start: 20080518
  2. NORVASC [Suspect]
     Indication: BLOOD PRESSURE
  3. LISINOPRIL [Suspect]

REACTIONS (1)
  - ANGIOEDEMA [None]
